FAERS Safety Report 15001542 (Version 1)
Quarter: 2018Q2

REPORT INFORMATION
  Report Type: Spontaneous
  Country: ES (occurrence: ES)
  Receive Date: 20180612
  Receipt Date: 20180612
  Transmission Date: 20180711
  Serious: Yes (Hospitalization, Other)
  Sender: FDA-Public Use
  Company Number: ES-MYLANLABS-2018M1038438

PATIENT
  Age: 80 Year
  Sex: Female

DRUGS (1)
  1. IBANDRONATE [Suspect]
     Active Substance: IBANDRONATE SODIUM
     Indication: OSTEOPOROSIS
     Dosage: UNK
     Route: 048

REACTIONS (5)
  - Pain in extremity [Recovering/Resolving]
  - Limb deformity [Unknown]
  - Osteoarthritis [Recovering/Resolving]
  - Motor dysfunction [Recovering/Resolving]
  - Femur fracture [Recovering/Resolving]
